FAERS Safety Report 4760888-1 (Version None)
Quarter: 2005Q3

REPORT INFORMATION
  Report Type: 
  Country: None (occurrence: None)
  Receive Date: 20050901
  Receipt Date: 20050822
  Transmission Date: 20060218
  Serious: Yes (Death)
  Sender: FDA-Public Use
  Company Number: 2004053460

PATIENT
  Age: 72 Year
  Sex: Female
  Weight: 72.5755 kg

DRUGS (6)
  1. ZOLOFT [Suspect]
     Indication: ANXIETY DISORDER
     Dosage: 50 MG (50 MG, 1 IN 1 D), ORAL
     Route: 048
     Dates: start: 20040601
  2. ALPRAZOLAM [Suspect]
     Indication: ANXIETY
     Dates: start: 20010101
  3. AMLODIPINE BESYLATE [Concomitant]
  4. ACETYLSALICYLIC ACID SRT [Concomitant]
  5. PAROXETINE HCL [Concomitant]
  6. MEPROBAMATE [Concomitant]

REACTIONS (8)
  - ALCOHOL INTERACTION [None]
  - ALCOHOLISM [None]
  - ANGER [None]
  - ANXIETY [None]
  - DIARRHOEA [None]
  - DISEASE RECURRENCE [None]
  - PERSONALITY CHANGE [None]
  - SERUM SEROTONIN INCREASED [None]
